FAERS Safety Report 10133809 (Version 2)
Quarter: 2014Q2

REPORT INFORMATION
  Report Type: Spontaneous
  Country: IT (occurrence: IT)
  Receive Date: 20140428
  Receipt Date: 20140501
  Transmission Date: 20141212
  Serious: Yes (Death)
  Sender: FDA-Public Use
  Company Number: PHHY2014IT047995

PATIENT
  Sex: Female

DRUGS (3)
  1. ZARZIO [Suspect]
     Indication: NEUTROPENIA
     Dosage: 1 DF, QD
     Route: 058
     Dates: start: 20140405, end: 20140407
  2. DOCETAXEL [Suspect]
     Indication: BREAST CANCER
     Dosage: 120 MG, UNK
     Route: 042
     Dates: start: 20140331, end: 20140331
  3. EPIRUBICIN [Suspect]
     Indication: BREAST CANCER
     Dosage: 120 MG, UNK
     Route: 042
     Dates: start: 20140331, end: 20140331

REACTIONS (2)
  - Functional gastrointestinal disorder [Fatal]
  - Abdominal pain [Fatal]
